FAERS Safety Report 5838919-7 (Version None)
Quarter: 2008Q3

REPORT INFORMATION
  Report Type: 
  Country: None (occurrence: None)
  Receive Date: 20080808
  Receipt Date: 20080731
  Transmission Date: 20090109
  Serious: Yes (Hospitalization)
  Sender: FDA-Public Use
  Company Number: PHHY2008DE13692

PATIENT
  Age: 71 Year
  Sex: Female

DRUGS (10)
  1. VOLTAREN [Suspect]
     Indication: OSTEOARTHRITIS
     Dosage: 1 DF, BID
     Route: 048
     Dates: start: 20050101
  2. GYNOKADIN TABLET [Concomitant]
     Dosage: UNK
  3. UTROGEST [Concomitant]
     Dosage: UNK
  4. DOGMATIL [Concomitant]
     Dosage: UNK
  5. OXYGESIC [Concomitant]
     Dosage: UNK
  6. PANTOZOL [Concomitant]
     Dosage: UNK
  7. OPIOIDS [Concomitant]
     Dosage: 20 MG, BID
  8. OPIOIDS [Concomitant]
     Dosage: 30 MG, BID
  9. EMSELEX [Concomitant]
     Dosage: UNK
  10. IBUPROFEN TABLETS [Concomitant]

REACTIONS (7)
  - ARTHRALGIA [None]
  - BACK PAIN [None]
  - DRUG INEFFECTIVE [None]
  - DRUG INTERACTION [None]
  - PYREXIA [None]
  - SPINAL COLUMN STENOSIS [None]
  - TREMOR [None]
